FAERS Safety Report 9155004 (Version 2)
Quarter: 2013Q3

REPORT INFORMATION
  Report Type: Spontaneous
  Country: FR (occurrence: FR)
  Receive Date: 20130311
  Receipt Date: 20130828
  Transmission Date: 20140515
  Serious: Yes (Hospitalization)
  Sender: FDA-Public Use
  Company Number: FR-B.I. PHARMACEUTICALS,INC./RIDGEFIELD-2013-FF-00633FF

PATIENT
  Age: 81 Year
  Sex: Male
  Weight: 100 kg

DRUGS (7)
  1. PRADAXA [Suspect]
     Indication: ATRIAL FIBRILLATION
     Dosage: 220 MG
     Route: 048
     Dates: start: 201212, end: 201301
  2. PRADAXA [Suspect]
     Dosage: 220 MG
     Route: 048
     Dates: start: 2013
  3. COZAAR [Concomitant]
  4. CARDENSIEL [Concomitant]
  5. METFORMINE [Concomitant]
  6. KALEORID [Concomitant]
  7. FUROSEMIDE [Concomitant]

REACTIONS (2)
  - Pulmonary embolism [Recovered/Resolved]
  - Cardiac failure [Recovered/Resolved]
